FAERS Safety Report 11196365 (Version 1)
Quarter: 2015Q2

REPORT INFORMATION
  Report Type: Spontaneous
  Country: SE (occurrence: SE)
  Receive Date: 20150617
  Receipt Date: 20150617
  Transmission Date: 20150821
  Serious: Yes (Other)
  Sender: FDA-Public Use
  Company Number: SE-HOSPIRA-2909956

PATIENT
  Sex: Male

DRUGS (6)
  1. FENTANYL. [Concomitant]
     Active Substance: FENTANYL
     Indication: SEDATIVE THERAPY
     Route: 041
  2. DEXDOR [Suspect]
     Active Substance: DEXMEDETOMIDINE HYDROCHLORIDE
     Indication: WEANING FAILURE
     Route: 041
  3. REMIFENTANIL [Concomitant]
     Active Substance: REMIFENTANIL
     Indication: SEDATIVE THERAPY
     Route: 041
  4. CLONIDINE. [Concomitant]
     Active Substance: CLONIDINE
     Indication: PRODUCT USED FOR UNKNOWN INDICATION
     Dosage: HIGH DOSES
     Route: 041
  5. OXYGEN. [Concomitant]
     Active Substance: OXYGEN
     Indication: RESPIRATORY FAILURE
     Route: 065
  6. PROPOFOL. [Concomitant]
     Active Substance: PROPOFOL
     Indication: SEDATIVE THERAPY
     Dosage: LARGE DOSES
     Route: 065

REACTIONS (2)
  - Hallucination [Recovered/Resolved]
  - Nightmare [Recovered/Resolved]
